FAERS Safety Report 7084353-4 (Version None)
Quarter: 2010Q4

REPORT INFORMATION
  Report Type: 
  Country: None (occurrence: None)
  Receive Date: 20101104
  Receipt Date: 20101027
  Transmission Date: 20110411
  Serious: Yes (Other)
  Sender: FDA-Public Use
  Company Number: JP-PFIZER INC-2010133675

PATIENT
  Age: 62 Year
  Sex: Female

DRUGS (2)
  1. ATARAX [Suspect]
     Dosage: 25 MG, 1X/DAY
     Route: 030
     Dates: start: 20100929
  2. PENTAZOCINE LACTATE [Suspect]
     Dosage: UNK
     Dates: start: 20100929

REACTIONS (2)
  - INJECTION SITE PAIN [None]
  - MUSCULOSKELETAL STIFFNESS [None]
